FAERS Safety Report 23193601 (Version 1)
Quarter: 2023Q4

REPORT INFORMATION
  Report Type: Spontaneous
  Country: US (occurrence: US)
  Receive Date: 20231116
  Receipt Date: 20231116
  Transmission Date: 20240109
  Serious: No
  Sender: FDA-Public Use
  Company Number: US-AMERICAN REGENT, INC.-2023ARI00015

PATIENT
  Age: 67 Year
  Sex: Female
  Weight: 126.98 kg

DRUGS (2)
  1. PACLITAXEL [Suspect]
     Active Substance: PACLITAXEL
     Indication: Breast cancer metastatic
     Dosage: UNK, 1X/WEEK
     Dates: start: 20230929
  2. UNSPECIFIED INGREDIENT [Concomitant]
     Active Substance: UNSPECIFIED INGREDIENT
     Dosage: UNK

REACTIONS (5)
  - Abdominal pain upper [Recovered/Resolved]
  - Pain of skin [Not Recovered/Not Resolved]
  - Nausea [Recovered/Resolved]
  - Alopecia [Not Recovered/Not Resolved]
  - Epistaxis [Recovered/Resolved]

NARRATIVE: CASE EVENT DATE: 20231001
